FAERS Safety Report 9295402 (Version 1)
Quarter: 2013Q2

REPORT INFORMATION
  Report Type: Spontaneous
  Country: US (occurrence: US)
  Receive Date: 20130517
  Receipt Date: 20130517
  Transmission Date: 20140414
  Serious: Yes (Hospitalization)
  Sender: FDA-Public Use
  Company Number: US-BRISTOL-MYERS SQUIBB COMPANY-18872184

PATIENT
  Sex: Male
  Weight: 77.1 kg

DRUGS (6)
  1. ABILIFY TABS [Suspect]
     Indication: ANXIETY
     Dosage: STARTED1.5YRS AGO.:5MG 1MONTH:INCREASED TO 10MG:INTERREPTED:RESTARTED WITH 2MG.
  2. ABILIFY TABS [Suspect]
     Indication: OBSESSIVE-COMPULSIVE DISORDER
     Dosage: STARTED1.5YRS AGO.:5MG 1MONTH:INCREASED TO 10MG:INTERREPTED:RESTARTED WITH 2MG.
  3. ABILIFY TABS [Suspect]
     Indication: MOOD SWINGS
     Dosage: STARTED1.5YRS AGO.:5MG 1MONTH:INCREASED TO 10MG:INTERREPTED:RESTARTED WITH 2MG.
  4. VALIUM [Concomitant]
  5. PROZAC [Concomitant]
  6. KLONOPIN [Concomitant]

REACTIONS (3)
  - Mental disorder [Unknown]
  - Dyskinesia [Unknown]
  - Tremor [Unknown]
